FAERS Safety Report 6835591-4 (Version None)
Quarter: 2010Q3

REPORT INFORMATION
  Report Type: 
  Country: None (occurrence: None)
  Receive Date: 20100713
  Receipt Date: 20100701
  Transmission Date: 20110219
  Serious: Yes (Hospitalization)
  Sender: FDA-Public Use
  Company Number: BR-ELI_LILLY_AND_COMPANY-BR201004006680

PATIENT
  Sex: Female
  Weight: 31.5 kg

DRUGS (6)
  1. FORTEO [Suspect]
     Indication: OSTEOPOROSIS
     Dosage: UNK, DAILY (1/D)
     Route: 058
     Dates: start: 20080801, end: 20100210
  2. FORTEO [Suspect]
     Dosage: UNK, DAILY (1/D)
     Route: 058
     Dates: start: 20100225
  3. BEMINAL /00003501/ [Concomitant]
     Dosage: UNK, DAILY (1/D)
  4. RETEMIC [Concomitant]
     Dosage: UNK, 2/D
  5. NORVASC [Concomitant]
     Dosage: UNK, DAILY (1/D)
  6. OSSOPAN /00615501/ [Concomitant]

REACTIONS (1)
  - ERYSIPELAS [None]
